FAERS Safety Report 6162135-5 (Version None)
Quarter: 2009Q2

REPORT INFORMATION
  Report Type: 
  Country: None (occurrence: None)
  Receive Date: 20090421
  Receipt Date: 20090408
  Transmission Date: 20091009
  Serious: Yes (Other)
  Sender: FDA-Public Use
  Company Number: US-PFIZER INC-2007078956

PATIENT
  Sex: Female
  Weight: 99 kg

DRUGS (4)
  1. MEDROXYPROGESTERONE AND MEDROXYPROGESTERONE ACETATE [Suspect]
     Indication: HORMONE REPLACEMENT THERAPY
     Dosage: UNK
     Route: 048
     Dates: start: 19960111, end: 20021010
  2. PREMPRO [Suspect]
     Indication: HORMONE REPLACEMENT THERAPY
     Route: 048
     Dates: start: 19970101, end: 20020101
  3. BENICAR [Concomitant]
     Indication: HYPERTENSION
     Dosage: UNK
     Dates: start: 19840101
  4. TRIAMTEREN [Concomitant]
     Indication: HYPERTENSION
     Dosage: UNK
     Dates: start: 19850101

REACTIONS (1)
  - BREAST CANCER [None]
